FAERS Safety Report 5834266-8 (Version None)
Quarter: 2008Q3

REPORT INFORMATION
  Report Type: 
  Country: None (occurrence: None)
  Receive Date: 20080805
  Receipt Date: 20080728
  Transmission Date: 20090109
  Serious: Yes (Other)
  Sender: FDA-Public Use
  Company Number: PHHY2008JP16278

PATIENT
  Age: 61 Year
  Sex: Male

DRUGS (3)
  1. EXJADE [Suspect]
     Indication: IRON OVERLOAD
     Dosage: 1000 MG/DAY
     Route: 048
     Dates: start: 20080619, end: 20080717
  2. EXJADE [Suspect]
     Dosage: 500 MG/DAY
     Route: 048
     Dates: start: 20080718, end: 20080722
  3. GASCON [Concomitant]
     Dosage: 80 MG, UNK
     Route: 048
     Dates: start: 20080718, end: 20080722

REACTIONS (4)
  - ABDOMINAL DISTENSION [None]
  - AGRANULOCYTOSIS [None]
  - PYREXIA [None]
  - STOMATITIS [None]
